FAERS Safety Report 20926000 (Version 1)
Quarter: 2022Q2

REPORT INFORMATION
  Report Type: Spontaneous
  Country: AU (occurrence: AU)
  Receive Date: 20220607
  Receipt Date: 20220607
  Transmission Date: 20220721
  Serious: Yes (Other)
  Sender: FDA-Public Use
  Company Number: AU-BRISTOL-MYERS SQUIBB COMPANY-2022-047476

PATIENT
  Sex: Male

DRUGS (2)
  1. DAKLINZA [Suspect]
     Active Substance: DACLATASVIR
     Indication: Chronic hepatitis C
     Dosage: UNK
     Dates: start: 201604, end: 201610
  2. SOVALDI [Suspect]
     Active Substance: SOFOSBUVIR
     Indication: Chronic hepatitis C
     Dosage: UNK
     Dates: start: 201604, end: 201610

REACTIONS (2)
  - Treatment failure [Not Recovered/Not Resolved]
  - Hepatic cirrhosis [Unknown]

NARRATIVE: CASE EVENT DATE: 20170101
